FAERS Safety Report 18135832 (Version 1)
Quarter: 2020Q3

REPORT INFORMATION
  Report Type: Spontaneous
  Country: CZ (occurrence: CZ)
  Receive Date: 20200811
  Receipt Date: 20200811
  Transmission Date: 20201103
  Serious: Yes (Hospitalization)
  Sender: FDA-Public Use
  Company Number: CZ-MYLANLABS-2020M1069537

PATIENT
  Age: 74 Year
  Sex: Male

DRUGS (1)
  1. KLACID [Suspect]
     Active Substance: CLARITHROMYCIN
     Indication: RESPIRATORY TRACT INFECTION
     Dosage: 500 MILLIGRAM
     Route: 042
     Dates: start: 20200717, end: 20200720

REACTIONS (2)
  - Hypersensitivity vasculitis [Unknown]
  - Rash [Unknown]

NARRATIVE: CASE EVENT DATE: 20200720
